FAERS Safety Report 15257891 (Version 1)
Quarter: 2018Q3

REPORT INFORMATION
  Report Type: Report from Study
  Country: JP (occurrence: JP)
  Receive Date: 20180808
  Receipt Date: 20180808
  Transmission Date: 20181010
  Serious: Yes (Life-Threatening, Hospitalization, Other)
  Sender: FDA-Public Use
  Company Number: JP-BEH-2018093442

PATIENT
  Age: 94 Year
  Sex: Female
  Weight: 45.4 kg

DRUGS (20)
  1. BERIPLEX P/N [Suspect]
     Active Substance: COAGULATION FACTOR IX HUMAN\COAGULATION FACTOR VII HUMAN\COAGULATION FACTOR X HUMAN\PROTEIN C\PROTEIN S HUMAN\PROTHROMBIN
     Indication: HAEMORRHAGE
     Dosage: 2250 IU, UNK
     Route: 042
     Dates: start: 20180422
  2. CEFTRIAXONE                        /00672202/ [Suspect]
     Active Substance: CEFTRIAXONE
     Dosage: UNK
     Route: 065
     Dates: start: 20180422, end: 20180424
  3. KAYTWO N [Concomitant]
     Active Substance: MENATETRENONE
     Dosage: 40 MG, UNK
     Route: 065
     Dates: start: 20180421, end: 20180422
  4. CEFAZOLIN SODIUM. [Concomitant]
     Active Substance: CEFAZOLIN SODIUM
     Dosage: UNK
     Route: 065
     Dates: start: 20180425, end: 20180510
  5. WARFARIN [Concomitant]
     Active Substance: WARFARIN
     Dosage: 1.5 MG, UNK
     Route: 048
     Dates: end: 20180421
  6. CALONAL [Concomitant]
     Active Substance: ACETAMINOPHEN
     Dosage: UNK
     Route: 048
     Dates: start: 20180424, end: 20180424
  7. TAKEPRON [Concomitant]
     Active Substance: LANSOPRAZOLE
     Dosage: UNK
     Route: 065
     Dates: start: 20180422, end: 20180424
  8. FAMOTIDINE. [Concomitant]
     Active Substance: FAMOTIDINE
     Route: 048
  9. LUNESTA [Concomitant]
     Active Substance: ESZOPICLONE
     Dosage: UNK
     Route: 048
     Dates: start: 20180423, end: 20180423
  10. ATORVASTATIN [Concomitant]
     Active Substance: ATORVASTATIN
     Route: 048
  11. BROTIZOLAM [Concomitant]
     Active Substance: BROTIZOLAM
     Route: 048
  12. LIXIANA [Concomitant]
     Active Substance: EDOXABAN TOSYLATE
     Dosage: 30 MG, UNK
     Route: 048
     Dates: start: 20180430
  13. CARVEDILOL. [Concomitant]
     Active Substance: CARVEDILOL
     Route: 048
  14. CUBICIN [Concomitant]
     Active Substance: DAPTOMYCIN
     Dosage: UNK
     Route: 065
     Dates: start: 20180422, end: 20180422
  15. ALENDRONATE [Concomitant]
     Active Substance: ALENDRONATE SODIUM
     Route: 048
  16. MEYLON [Concomitant]
     Active Substance: SODIUM BICARBONATE
     Dosage: UNK
     Route: 065
     Dates: start: 20180422, end: 20180422
  17. AZILVA [Concomitant]
     Active Substance: AZILSARTAN KAMEDOXOMIL
     Route: 048
  18. FEBURIC [Concomitant]
     Active Substance: FEBUXOSTAT
     Route: 048
  19. BERIPLEX P/N [Suspect]
     Active Substance: COAGULATION FACTOR IX HUMAN\COAGULATION FACTOR VII HUMAN\COAGULATION FACTOR X HUMAN\PROTEIN C\PROTEIN S HUMAN\PROTHROMBIN
     Indication: COAGULATION TEST ABNORMAL
  20. BENIDIPINE HYDROCHLORIDE [Concomitant]
     Active Substance: BENIDIPINE HYDROCHLORIDE
     Route: 048

REACTIONS (8)
  - Hypophosphataemia [Recovering/Resolving]
  - Pancreatitis acute [Recovering/Resolving]
  - Cholangitis [Recovering/Resolving]
  - Cardiac failure [Recovering/Resolving]
  - Obstructive pancreatitis [Unknown]
  - Hypomagnesaemia [Recovering/Resolving]
  - Bile duct stone [Unknown]
  - Hypocalcaemia [Recovering/Resolving]

NARRATIVE: CASE EVENT DATE: 20180422
